FAERS Safety Report 13709830 (Version 1)
Quarter: 2017Q3

REPORT INFORMATION
  Report Type: Spontaneous
  Country: GB (occurrence: GB)
  Receive Date: 20170703
  Receipt Date: 20170703
  Transmission Date: 20171127
  Serious: Yes (Hospitalization)
  Sender: FDA-Public Use
  Company Number: GB-ASTRAZENECA-2017SE67435

PATIENT
  Age: 16 Year
  Sex: Female

DRUGS (8)
  1. LORAZEPAM. [Concomitant]
     Active Substance: LORAZEPAM
  2. PROCYCLIDINE [Concomitant]
     Active Substance: PROCYCLIDINE
  3. SERTRALINE [Suspect]
     Active Substance: SERTRALINE HYDROCHLORIDE
     Indication: DEPRESSION
     Route: 065
     Dates: start: 20170530, end: 20170601
  4. CODEINE [Concomitant]
     Active Substance: CODEINE
  5. QUETIAPINE FUMARATE. [Suspect]
     Active Substance: QUETIAPINE FUMARATE
     Indication: DEPRESSION
     Dosage: 25 DAILY MORNING
     Route: 048
     Dates: end: 20170613
  6. PARACETAMOL [Concomitant]
     Active Substance: ACETAMINOPHEN
  7. SERTRALINE [Suspect]
     Active Substance: SERTRALINE HYDROCHLORIDE
     Indication: DEPRESSION
     Route: 065
     Dates: start: 20170602, end: 20170607
  8. SERTRALINE [Suspect]
     Active Substance: SERTRALINE HYDROCHLORIDE
     Indication: DEPRESSION
     Route: 065
     Dates: start: 20170608, end: 20170613

REACTIONS (2)
  - Serotonin syndrome [Recovered/Resolved]
  - Psychogenic seizure [Recovered/Resolved]

NARRATIVE: CASE EVENT DATE: 20170610
